FAERS Safety Report 23236055 (Version 1)
Quarter: 2023Q4

REPORT INFORMATION
  Report Type: Spontaneous
  Country: US (occurrence: US)
  Receive Date: 20231128
  Receipt Date: 20231128
  Transmission Date: 20240110
  Serious: Yes (Life-Threatening)
  Sender: FDA-Public Use
  Company Number: US-002147023-NVSC2023US247404

PATIENT
  Sex: Male

DRUGS (4)
  1. TAFINLAR [Suspect]
     Active Substance: DABRAFENIB MESYLATE
     Indication: Metastases to liver
     Dosage: 150 MG, Q12H
     Route: 048
     Dates: start: 202308
  2. TAFINLAR [Suspect]
     Active Substance: DABRAFENIB MESYLATE
     Indication: Cholangiocarcinoma
  3. MEKINIST [Suspect]
     Active Substance: TRAMETINIB DIMETHYL SULFOXIDE
     Indication: Metastases to liver
     Dosage: 2 MG, QD
     Route: 048
     Dates: start: 202309
  4. MEKINIST [Suspect]
     Active Substance: TRAMETINIB DIMETHYL SULFOXIDE
     Indication: Cholangiocarcinoma

REACTIONS (2)
  - Drug intolerance [Unknown]
  - Product use in unapproved indication [Unknown]
